FAERS Safety Report 14341099 (Version 2)
Quarter: 2018Q1

REPORT INFORMATION
  Report Type: Spontaneous
  Country: US (occurrence: US)
  Receive Date: 20180102
  Receipt Date: 20180103
  Transmission Date: 20180509
  Serious: No
  Sender: FDA-Public Use
  Company Number: US-B.I. PHARMACEUTICALS,INC./RIDGEFIELD-2017-BI-069101

PATIENT
  Age: 38 Year
  Sex: Male

DRUGS (3)
  1. SYNJARDY [Suspect]
     Active Substance: EMPAGLIFLOZIN\METFORMIN HYDROCHLORIDE
     Indication: TYPE 2 DIABETES MELLITUS
     Dosage: FORM STRENGTH: 5 MG / 1000 MG
     Route: 048
     Dates: start: 20171101, end: 20171226
  2. VALSARTAN. [Concomitant]
     Active Substance: VALSARTAN
     Indication: HYPERTENSION
     Route: 048
  3. LODIPINE [Concomitant]
     Indication: HYPERTENSION
     Route: 048

REACTIONS (5)
  - Energy increased [Recovered/Resolved]
  - Abdominal distension [Recovered/Resolved]
  - Fungal infection [Recovered/Resolved]
  - Pollakiuria [Unknown]
  - Blood pressure decreased [Unknown]

NARRATIVE: CASE EVENT DATE: 201711
